FAERS Safety Report 6430772-6 (Version None)
Quarter: 2009Q4

REPORT INFORMATION
  Report Type: 
  Country: None (occurrence: None)
  Receive Date: 20091103
  Receipt Date: 20091022
  Transmission Date: 20100525
  Serious: Yes (Hospitalization)
  Sender: FDA-Public Use
  Company Number: 230415K09BRA

PATIENT
  Age: 42 Year
  Sex: Female

DRUGS (4)
  1. REBIF [Suspect]
     Indication: RELAPSING-REMITTING MULTIPLE SCLEROSIS
     Dosage: 44 MCG, 3 IN 1 WEEKS
     Dates: start: 20090422
  2. CITALOPRAM (CITALOPRAM /000582601/) [Concomitant]
  3. MANTIDAN [MANTADAN] (AMANTADINE HYDROCHLORIDE) [Concomitant]
  4. BUPROPIONE [BUPROPION) (BUPROPION) [Concomitant]

REACTIONS (5)
  - BONE PAIN [None]
  - HYPERTENSION [None]
  - HYPOAESTHESIA [None]
  - NECK PAIN [None]
  - SYNCOPE [None]
